FAERS Safety Report 25105529 (Version 1)
Quarter: 2025Q1

REPORT INFORMATION
  Report Type: Spontaneous
  Country: US (occurrence: US)
  Receive Date: 20250321
  Receipt Date: 20250321
  Transmission Date: 20250409
  Serious: No
  Sender: ESPERION THERAPEUTICS
  Company Number: US-ESPERIONTHERAPEUTICS-2024USA01571

PATIENT
  Age: 78 Year
  Sex: Female

DRUGS (4)
  1. NEXLETOL [Suspect]
     Active Substance: BEMPEDOIC ACID
     Indication: Blood cholesterol increased
     Dosage: 180 MILLIGRAM, QD
     Route: 048
     Dates: start: 20240827, end: 20241004
  2. ZETIA [Concomitant]
     Active Substance: EZETIMIBE
     Route: 048
  3. FLAXSEED [Concomitant]
     Active Substance: FLAX SEED
     Route: 048
  4. Red yeast plus [Concomitant]
     Route: 048

REACTIONS (8)
  - Gastrointestinal disorder [Recovering/Resolving]
  - Abdominal distension [Recovering/Resolving]
  - Flatulence [Recovering/Resolving]
  - Hunger [Recovering/Resolving]
  - Gastric pH decreased [Recovering/Resolving]
  - Therapy cessation [Unknown]
  - Abdominal pain upper [Recovered/Resolved]
  - Abdominal pain [Recovered/Resolved]

NARRATIVE: CASE EVENT DATE: 20240930
